FAERS Safety Report 6145021-6 (Version None)
Quarter: 2009Q2

REPORT INFORMATION
  Report Type: 
  Country: None (occurrence: None)
  Receive Date: 20090401
  Receipt Date: 20090401
  Transmission Date: 20091009
  Serious: Yes (Other)
  Sender: FDA-Public Use
  Company Number: None

PATIENT
  Age: 68 Year
  Sex: Female
  Weight: 62.5964 kg

DRUGS (1)
  1. LEVAQUIN [Suspect]
     Indication: RESPIRATORY TRACT INFECTION
     Dosage: 1 TABLET ONCE A DAY PO
     Route: 048
     Dates: start: 20090320, end: 20090322

REACTIONS (4)
  - HEADACHE [None]
  - INSOMNIA [None]
  - NAUSEA [None]
  - TENDONITIS [None]
